FAERS Safety Report 4429461-9 (Version None)
Quarter: 2004Q3

REPORT INFORMATION
  Report Type: 
  Country: None (occurrence: None)
  Receive Date: 20040816
  Receipt Date: 20040730
  Transmission Date: 20050211
  Serious: Yes (Hospitalization)
  Sender: FDA-Public Use
  Company Number: 04P-130-0268836-00

PATIENT
  Age: 5 Year
  Sex: Male

DRUGS (4)
  1. DEPAKENE [Suspect]
     Indication: EPILEPSY
     Dosage: 20 MG/KG, 1 IN 1 D, PER ORAL
     Route: 048
     Dates: start: 20040227, end: 20040706
  2. TOPIRMATE [Concomitant]
  3. CLONAZEPAM [Concomitant]
  4. CYCLOPHOSPHAMIDE [Concomitant]

REACTIONS (4)
  - AFFECT LABILITY [None]
  - BALANCE DISORDER [None]
  - PROSTRATION [None]
  - SEDATION [None]
